FAERS Safety Report 7530088-0 (Version None)
Quarter: 2011Q2

REPORT INFORMATION
  Report Type: 
  Country: None (occurrence: None)
  Receive Date: 20110607
  Receipt Date: 20110606
  Transmission Date: 20111010
  Serious: Yes (Hospitalization)
  Sender: FDA-Public Use
  Company Number: GB-AMGEN-KDL445341

PATIENT
  Sex: Female

DRUGS (3)
  1. GEMCITABINE [Concomitant]
  2. TREOSULFAN [Concomitant]
  3. NEULASTA [Suspect]
     Indication: CHEMOTHERAPY
     Dosage: UNK
     Dates: start: 20100918

REACTIONS (2)
  - DYSPNOEA [None]
  - CHEST PAIN [None]
